FAERS Safety Report 20775562 (Version 1)
Quarter: 2022Q2

REPORT INFORMATION
  Report Type: Spontaneous
  Country: AU (occurrence: AU)
  Receive Date: 20220502
  Receipt Date: 20220502
  Transmission Date: 20220720
  Serious: Yes (Other)
  Sender: FDA-Public Use
  Company Number: AU-NOVARTISPH-NVSC2022AU100537

PATIENT
  Sex: Male

DRUGS (1)
  1. IMATINIB [Suspect]
     Active Substance: IMATINIB
     Indication: Chronic myeloid leukaemia
     Dosage: UNK
     Route: 065

REACTIONS (6)
  - Cardiomyopathy [Unknown]
  - Diabetes mellitus [Unknown]
  - Pleural effusion [Unknown]
  - Reaction to excipient [Unknown]
  - Fatigue [Unknown]
  - Peripheral vascular disorder [Unknown]
